FAERS Safety Report 8493848-8 (Version None)
Quarter: 2012Q3

REPORT INFORMATION
  Report Type: 
  Country: None (occurrence: None)
  Receive Date: 20120706
  Receipt Date: 20120622
  Transmission Date: 20120928
  Serious: Yes (Other)
  Sender: FDA-Public Use
  Company Number: JP-SANTEN INC.-INC-12-000193

PATIENT
  Sex: Female

DRUGS (3)
  1. DIQUAFOSOL SODIUM [Suspect]
     Dates: start: 20101201, end: 20110325
  2. HYALEIN [Suspect]
     Route: 047
     Dates: start: 20110319, end: 20110322
  3. LEVOFLOXACIN [Suspect]
     Indication: CONJUNCTIVITIS
     Route: 047
     Dates: start: 20110322, end: 20110331

REACTIONS (2)
  - CONJUNCTIVITIS [None]
  - OCULAR PEMPHIGOID [None]
